FAERS Safety Report 5302182-6 (Version None)
Quarter: 2007Q2

REPORT INFORMATION
  Report Type: 
  Country: None (occurrence: None)
  Receive Date: 20070419
  Receipt Date: 20070413
  Transmission Date: 20071010
  Serious: Yes (Other)
  Sender: FDA-Public Use
  Company Number: 2007SE01766

PATIENT
  Sex: Female

DRUGS (4)
  1. ZOLADEX [Suspect]
     Indication: ENDOMETRIOSIS
     Route: 058
  2. MULTI-VITAMIN [Concomitant]
  3. CALCIUM SUPPLEMENT [Concomitant]
  4. FOLIC ACID [Concomitant]

REACTIONS (1)
  - CARPAL TUNNEL SYNDROME [None]
